FAERS Safety Report 5625743-3 (Version None)
Quarter: 2008Q1

REPORT INFORMATION
  Report Type: 
  Country: None (occurrence: None)
  Receive Date: 20080214
  Receipt Date: 20080214
  Transmission Date: 20080703
  Serious: Yes (Other)
  Sender: FDA-Public Use
  Company Number: None

PATIENT
  Age: 36 Year
  Sex: Female
  Weight: 47.4009 kg

DRUGS (2)
  1. HEPARIN [Suspect]
     Indication: HAEMODIALYSIS
     Dosage: 2000 UNITS 3 TIMES PER WEEK HEMODIALYSI
  2. HEPARIN [Suspect]

REACTIONS (3)
  - FLUSHING [None]
  - HEADACHE [None]
  - PALPITATIONS [None]
